FAERS Safety Report 12636858 (Version 2)
Quarter: 2016Q3

REPORT INFORMATION
  Report Type: Spontaneous
  Country: DE (occurrence: DE)
  Receive Date: 20160809
  Receipt Date: 20160824
  Transmission Date: 20161109
  Serious: Yes (Hospitalization)
  Sender: FDA-Public Use
  Company Number: PHHY2016DE108296

PATIENT
  Sex: Female

DRUGS (1)
  1. COSENTYX [Suspect]
     Active Substance: SECUKINUMAB
     Indication: PSORIASIS
     Dosage: 300 MG, QW4
     Route: 065
     Dates: start: 201510

REACTIONS (7)
  - Conjunctivitis [Unknown]
  - Urticaria [Unknown]
  - Mucosal inflammation [Unknown]
  - Rash [Unknown]
  - Breast pain [Unknown]
  - Eczema [Unknown]
  - Genital pain [Unknown]

NARRATIVE: CASE EVENT DATE: 2016
